FAERS Safety Report 7828981-4 (Version None)
Quarter: 2011Q4

REPORT INFORMATION
  Report Type: 
  Country: None (occurrence: None)
  Receive Date: 20111020
  Receipt Date: 20111003
  Transmission Date: 20120403
  Serious: Yes (Other)
  Sender: FDA-Public Use
  Company Number: US-BAYER-2011-095550

PATIENT
  Age: 48 Year
  Sex: Female
  Weight: 57 kg

DRUGS (2)
  1. ALEVE (CAPLET) [Suspect]
     Indication: NECK PAIN
  2. ALEVE (CAPLET) [Suspect]
     Indication: BACK PAIN
     Dosage: 220 MG, UNK, BOTTLE COUNT 6S
     Route: 048
     Dates: start: 20111002

REACTIONS (4)
  - RECTAL HAEMORRHAGE [None]
  - VOMITING [None]
  - FEELING ABNORMAL [None]
  - EUPHORIC MOOD [None]
